FAERS Safety Report 20718827 (Version 1)
Quarter: 2022Q2

REPORT INFORMATION
  Report Type: Spontaneous
  Country: IT (occurrence: IT)
  Receive Date: 20220418
  Receipt Date: 20220418
  Transmission Date: 20220721
  Serious: Yes (Other)
  Sender: FDA-Public Use
  Company Number: IT-009507513-2204ITA001867

PATIENT
  Age: 43 Year
  Sex: Female

DRUGS (3)
  1. PEMETREXED [Suspect]
     Active Substance: PEMETREXED
     Indication: Non-small cell lung cancer
     Dosage: UNK UNK, UNKNOWN
     Route: 065
  2. CISPLATIN [Suspect]
     Active Substance: CISPLATIN
     Indication: Non-small cell lung cancer
     Dosage: UNK UNK, UNKNOWN
     Route: 065
  3. PEMBROLIZUMAB [Suspect]
     Active Substance: PEMBROLIZUMAB
     Indication: Non-small cell lung cancer
     Dosage: UNK UNK, UNKNOWN
     Route: 065

REACTIONS (3)
  - Immune-mediated hepatitis [Recovered/Resolved]
  - Hypertransaminasaemia [Recovered/Resolved]
  - Therapy partial responder [Unknown]
